FAERS Safety Report 24906431 (Version 1)
Quarter: 2025Q1

REPORT INFORMATION
  Report Type: Spontaneous
  Country: FR (occurrence: FR)
  Receive Date: 20250130
  Receipt Date: 20250130
  Transmission Date: 20250408
  Serious: Yes (Death)
  Sender: INCYTE
  Company Number: FR-002147023-NVSC2025FR015152

PATIENT

DRUGS (1)
  1. RUXOLITINIB [Suspect]
     Active Substance: RUXOLITINIB
     Indication: Product used for unknown indication
     Route: 065

REACTIONS (1)
  - Death [Fatal]
